FAERS Safety Report 22249510 (Version 1)
Quarter: 2023Q2

REPORT INFORMATION
  Report Type: Spontaneous
  Country: US (occurrence: None)
  Receive Date: 20230424
  Receipt Date: 20230424
  Transmission Date: 20230722
  Serious: Yes (Life-Threatening)
  Sender: FDA-Public Use
  Company Number: None

PATIENT
  Age: 40 Year
  Sex: Female
  Weight: 74.5 kg

DRUGS (2)
  1. CEFTRIAXONE [Suspect]
     Active Substance: CEFTRIAXONE
     Indication: Sepsis
     Dosage: OTHER FREQUENCY : ONCE;?
     Route: 040
     Dates: start: 20230423, end: 20230423
  2. acetaminophen 1000 mg tablet [Concomitant]
     Dates: start: 20230423, end: 20230423

REACTIONS (3)
  - Urticaria [None]
  - Pruritus [None]
  - Infusion related reaction [None]

NARRATIVE: CASE EVENT DATE: 20230423
